FAERS Safety Report 9179584 (Version 1)
Quarter: 2012Q4

REPORT INFORMATION
  Report Type: 
  Country: US (occurrence: US)
  Receive Date: 20121029
  Receipt Date: 20121029
  Transmission Date: 20130627
  Serious: Yes (Other)
  Sender: FDA-Public Use
  Company Number: US-GLAXOSMITHKLINE-A0815620A

PATIENT
  Age: 63 Year
  Sex: Male
  Weight: 193.2 kg

DRUGS (1)
  1. AVANDIA [Suspect]
     Indication: DIABETES MELLITUS
     Dosage: 4MG Twice per day
     Route: 048
     Dates: start: 2002, end: 2005

REACTIONS (7)
  - Cardiac disorder [Not Recovered/Not Resolved]
  - Lethargy [Unknown]
  - Weight increased [Unknown]
  - Dyspnoea [Unknown]
  - Bronchitis [Unknown]
  - Angina pectoris [Unknown]
  - Cardiomyopathy [Unknown]
